FAERS Safety Report 9295717 (Version 2)
Quarter: 2013Q2

REPORT INFORMATION
  Report Type: Spontaneous
  Country: KR (occurrence: KR)
  Receive Date: 20130517
  Receipt Date: 20130524
  Transmission Date: 20140414
  Serious: Yes (Hospitalization)
  Sender: FDA-Public Use
  Company Number: KR-SANOFI-AVENTIS-2013SA049309

PATIENT
  Age: 69 Year
  Sex: Male

DRUGS (7)
  1. CLOPIDOGREL BISULFATE [Suspect]
     Indication: MYOCARDIAL ISCHAEMIA
     Route: 048
     Dates: start: 2009
  2. ASPIRIN [Suspect]
     Indication: MYOCARDIAL ISCHAEMIA
     Route: 048
     Dates: start: 2009
  3. VALSARTAN [Concomitant]
     Route: 048
  4. PRAVASTATIN [Concomitant]
     Route: 048
  5. CARVEDILOL [Concomitant]
     Route: 048
  6. SPIRONOLACTONE [Concomitant]
     Route: 048
  7. DIGOXIN [Concomitant]
     Route: 048

REACTIONS (7)
  - Spinal epidural haematoma [Recovered/Resolved with Sequelae]
  - Back pain [Recovered/Resolved with Sequelae]
  - Paraplegia [Recovering/Resolving]
  - Hypoaesthesia [Recovered/Resolved]
  - Paralysis [Recovering/Resolving]
  - Hyporeflexia [Recovered/Resolved]
  - Pallor [Recovered/Resolved]
